FAERS Safety Report 6071603-6 (Version None)
Quarter: 2009Q1

REPORT INFORMATION
  Report Type: 
  Country: None (occurrence: None)
  Receive Date: 20090209
  Receipt Date: 20090209
  Transmission Date: 20090719
  Serious: Yes (Disabling)
  Sender: FDA-Public Use
  Company Number: None

PATIENT
  Age: 64 Year
  Sex: Male
  Weight: 113.3993 kg

DRUGS (2)
  1. CRESTOR [Suspect]
     Dosage: 10 MG 1 A DAY MOUTH
     Route: 048
     Dates: start: 20081127, end: 20081214
  2. ARTHROTEC [Suspect]
     Indication: ARTHRALGIA
     Dosage: 75 MG/200 MCG 1 A DAY MOUTH SUMMER 08
     Route: 048
     Dates: start: 20080101

REACTIONS (7)
  - DIARRHOEA [None]
  - HEADACHE [None]
  - MOVEMENT DISORDER [None]
  - MUSCULOSKELETAL PAIN [None]
  - MYALGIA [None]
  - NECK PAIN [None]
  - PAIN IN EXTREMITY [None]
